FAERS Safety Report 8973979 (Version 1)
Quarter: 2012Q4

REPORT INFORMATION
  Report Type: 
  Country: US (occurrence: US)
  Receive Date: 20121218
  Receipt Date: 20121218
  Transmission Date: 20130627
  Serious: No
  Sender: FDA-Public Use
  Company Number: US-BRISTOL-MYERS SQUIBB COMPANY-16396913

PATIENT
  Age: 54 Year
  Sex: Female
  Weight: 72.56 kg

DRUGS (4)
  1. ABILIFY [Suspect]
     Indication: DEPRESSION
     Dates: start: 20120208
  2. BABY ASPIRIN [Concomitant]
  3. FISH OIL [Concomitant]
  4. VITAMIN D [Concomitant]

REACTIONS (1)
  - Heart rate increased [Not Recovered/Not Resolved]
